FAERS Safety Report 7632580-7 (Version None)
Quarter: 2011Q3

REPORT INFORMATION
  Report Type: 
  Country: None (occurrence: None)
  Receive Date: 20110725
  Receipt Date: 20101020
  Transmission Date: 20111222
  Serious: No
  Sender: FDA-Public Use
  Company Number: US-BRISTOL-MYERS SQUIBB COMPANY-15343205

PATIENT
  Age: 71 Year
  Sex: Male

DRUGS (7)
  1. COUMADIN [Suspect]
     Indication: SYSTEMIC LUPUS ERYTHEMATOSUS
  2. COUMADIN [Suspect]
     Indication: THROMBOSIS
  3. CALCIUM CARBONATE [Concomitant]
  4. CHONDROITIN SULFATE + GLUCOSAMINE [Concomitant]
  5. ASCORBIC ACID [Concomitant]
  6. COUMADIN [Suspect]
     Indication: PHLEBITIS
  7. VITAMIN D [Concomitant]

REACTIONS (1)
  - INTERNATIONAL NORMALISED RATIO INCREASED [None]
